FAERS Safety Report 23148071 (Version 1)
Quarter: 2023Q4

REPORT INFORMATION
  Report Type: Report from Study
  Country: US (occurrence: US)
  Receive Date: 20231106
  Receipt Date: 20231106
  Transmission Date: 20240110
  Serious: Yes (Hospitalization)
  Sender: FDA-Public Use
  Company Number: US-Accord-388929

PATIENT
  Sex: Male
  Weight: 88.7 kg

DRUGS (1)
  1. CLOZAPINE [Suspect]
     Active Substance: CLOZAPINE
     Indication: Schizophrenia
     Dosage: 100MG BY MOUTH EVERY MORNING, 400MG BY MOUTH EVERY EVENING

REACTIONS (1)
  - Fall [Unknown]
